FAERS Safety Report 8946739 (Version 1)
Quarter: 2012Q4

REPORT INFORMATION
  Report Type: 
  Country: US (occurrence: US)
  Receive Date: 20121204
  Receipt Date: 20121204
  Transmission Date: 20130627
  Serious: No
  Sender: FDA-Public Use
  Company Number: US-AMGEN-USASP2012070782

PATIENT
  Age: 59 Year
  Sex: Female
  Weight: 89.8 kg

DRUGS (19)
  1. ENBREL [Suspect]
     Indication: RHEUMATOID ARTHRITIS
     Dosage: 50 mg, qwk
     Route: 058
     Dates: start: 20121017
  2. PLAQUENIL                          /00072602/ [Concomitant]
     Dosage: 200 mg, bid
     Route: 048
  3. PREMARIN [Concomitant]
     Dosage: 1.25 mg, qd
     Route: 048
  4. XANAX [Concomitant]
     Dosage: 0.5 mg, tid
  5. NEURONTIN [Concomitant]
     Dosage: 100 mg, tid, One tab at bed time for three days, twice a day for three days, and three times a day
     Route: 048
  6. TRILIPIX [Concomitant]
     Dosage: 135 mg, qd
     Route: 048
  7. NORCO [Concomitant]
     Indication: PAIN
     Dosage: 7.5-325 mg, every six hours as needed
     Route: 048
  8. DELTASONE                          /00016001/ [Concomitant]
     Dosage: 10 mg, 10 mg tab for 10 days and 5mg daily
  9. MOBIC [Concomitant]
     Dosage: 15 mg, qd
     Route: 048
  10. RESTORIL                           /00054301/ [Concomitant]
     Indication: INSOMNIA
     Dosage: 15 mg, prn
  11. ULTRAM [Concomitant]
     Dosage: 50 mg,every six hours as needed
     Route: 048
  12. FOLVITE                            /00024201/ [Concomitant]
     Dosage: 1 mg, qd
     Route: 048
  13. TENORMIN [Concomitant]
     Dosage: 50 mg, qd
     Route: 048
  14. LOVAZA [Concomitant]
     Dosage: 1 g, bid
     Route: 048
  15. PRILOSEC                           /00661201/ [Concomitant]
     Dosage: 20 mg, qd
     Route: 048
  16. ALDACTONE                          /00006201/ [Concomitant]
     Dosage: 50 mg, qd
     Route: 048
  17. WELCHOL [Concomitant]
     Dosage: 625 mg, three tablets in morning and three tablets in night
  18. SYNTHROID [Concomitant]
     Dosage: 100 mug, qd
     Route: 048
  19. METHOTREXATE [Concomitant]
     Dosage: UNK

REACTIONS (9)
  - Rash erythematous [Not Recovered/Not Resolved]
  - Pain [Not Recovered/Not Resolved]
  - Arthralgia [Recovering/Resolving]
  - Musculoskeletal pain [Recovering/Resolving]
  - Feeling abnormal [Recovering/Resolving]
  - Musculoskeletal stiffness [Recovering/Resolving]
  - Fatigue [Recovering/Resolving]
  - Arthritis [Unknown]
  - Joint swelling [Unknown]
